FAERS Safety Report 7471890-3 (Version None)
Quarter: 2011Q2

REPORT INFORMATION
  Report Type: 
  Country: None (occurrence: None)
  Receive Date: 20110511
  Receipt Date: 20100618
  Transmission Date: 20111010
  Serious: No
  Sender: FDA-Public Use
  Company Number: A0867992A

PATIENT
  Age: 81 Year
  Sex: Female

DRUGS (6)
  1. WATER PILL [Concomitant]
  2. XELODA [Suspect]
     Route: 065
     Dates: start: 20100611
  3. UNKNOWN CANCER THERAPY DRUG [Concomitant]
  4. TYKERB [Suspect]
     Indication: BREAST CANCER
     Dosage: 4TAB PER DAY
     Route: 048
     Dates: start: 20100601
  5. UNSPECIFIED MEDICATION [Suspect]
     Route: 065
  6. HEART MEDICATION [Concomitant]

REACTIONS (6)
  - CONSTIPATION [None]
  - VOMITING [None]
  - FATIGUE [None]
  - ABDOMINAL PAIN UPPER [None]
  - NAUSEA [None]
  - PRURITUS [None]
